FAERS Safety Report 7402606-4 (Version None)
Quarter: 2011Q1

REPORT INFORMATION
  Report Type: 
  Country: None (occurrence: None)
  Receive Date: 20110330
  Receipt Date: 20110318
  Transmission Date: 20110831
  Serious: Yes (Disabling)
  Sender: FDA-Public Use
  Company Number: PHHY2010JP76504

PATIENT
  Age: 84 Year
  Sex: Male
  Weight: 54.0234 kg

DRUGS (13)
  1. KIPRES [Concomitant]
  2. LUCENTIS [Suspect]
     Indication: MACULAR DEGENERATION
     Dosage: 0.05 ML DAILY EY
     Dates: start: 20091014, end: 20091014
  3. ADONA [Concomitant]
  4. CRAVIT [Concomitant]
  5. KENACORT [Concomitant]
  6. MEPTIN [Concomitant]
  7. CLARITH [Concomitant]
  8. FAMOSTAGINE [Concomitant]
  9. VISUDYNE [Suspect]
     Indication: MACULAR DEGENERATION
     Dosage: 6 MG/M2 ONCE IV
     Route: 042
     Dates: start: 20101013, end: 20101013
  10. VISUDYNE [Suspect]
     Indication: MACULAR DEGENERATION
     Dosage: 6 MG/ML ONCE IV
     Route: 042
     Dates: start: 20091014, end: 20091014
  11. MUCOSTA [Concomitant]
  12. FLENIED [Concomitant]
  13. LUCENTIS [Suspect]
     Indication: MACULAR DEGENERATION
     Dosage: 0.05 ML DAILY EY
     Dates: start: 20101013, end: 20101013

REACTIONS (4)
  - RETINAL OEDEMA [None]
  - RETINAL ISCHAEMIA [None]
  - VISUAL ACUITY REDUCED [None]
  - RETINAL HAEMORRHAGE [None]
